FAERS Safety Report 8459811-8 (Version None)
Quarter: 2012Q2

REPORT INFORMATION
  Report Type: 
  Country: None (occurrence: None)
  Receive Date: 20120622
  Receipt Date: 20120620
  Transmission Date: 20120825
  Serious: Yes (Other)
  Sender: FDA-Public Use
  Company Number: US-TEVA-344209USA

PATIENT
  Sex: Male

DRUGS (1)
  1. CLARAVIS [Suspect]
     Indication: NEUROBLASTOMA
     Route: 048

REACTIONS (2)
  - NEUROBLASTOMA RECURRENT [None]
  - OFF LABEL USE [None]
